FAERS Safety Report 6011875-7 (Version None)
Quarter: 2008Q4

REPORT INFORMATION
  Report Type: 
  Country: None (occurrence: None)
  Receive Date: 20081218
  Receipt Date: 20080925
  Transmission Date: 20090506
  Serious: No
  Sender: FDA-Public Use
  Company Number: US-ASTRAZENECA-2008UW20240

PATIENT
  Age: 74 Year
  Sex: Male
  Weight: 113.4 kg

DRUGS (3)
  1. CRESTOR [Suspect]
     Indication: BLOOD CHOLESTEROL INCREASED
     Route: 048
     Dates: start: 20080919
  2. AVADAR [Concomitant]
  3. HYDROCHLORATHIAZIDE [Concomitant]

REACTIONS (1)
  - FLUSHING [None]
